FAERS Safety Report 12641823 (Version 1)
Quarter: 2016Q3

REPORT INFORMATION
  Report Type: Spontaneous
  Country: US (occurrence: US)
  Receive Date: 20160810
  Receipt Date: 20160810
  Transmission Date: 20161109
  Serious: No
  Sender: FDA-Public Use
  Company Number: GXBR2016US002247

PATIENT
  Age: 37 Year
  Sex: Female

DRUGS (4)
  1. PREDNISONE TABLETS USP [Suspect]
     Active Substance: PREDNISONE
     Indication: PSORIATIC ARTHROPATHY
     Dosage: UNK DF, EVERY SIX WEEKS
     Route: 065
  2. METHOTREXATE SODIUM. [Suspect]
     Active Substance: METHOTREXATE SODIUM
     Indication: PSORIATIC ARTHROPATHY
     Dosage: UNK DF, EVERY SIX WEEKS
     Route: 065
  3. GABAPENTIN. [Suspect]
     Active Substance: GABAPENTIN
     Indication: PSORIATIC ARTHROPATHY
     Dosage: UNK DF, EVERY SIX WEEKS
     Route: 065
  4. TRAMADOL HYDROCHLORIDE TABLETS [Suspect]
     Active Substance: TRAMADOL HYDROCHLORIDE
     Indication: PSORIATIC ARTHROPATHY
     Dosage: UNK DF, EVERY SIX WEEKS
     Route: 065

REACTIONS (1)
  - Nephrolithiasis [Not Recovered/Not Resolved]
